FAERS Safety Report 17488930 (Version 3)
Quarter: 2023Q1

REPORT INFORMATION
  Report Type: Report from Study
  Country: IT (occurrence: IT)
  Receive Date: 20200303
  Receipt Date: 20230214
  Transmission Date: 20230417
  Serious: Yes (Other)
  Sender: FDA-Public Use
  Company Number: IT-ROCHE-2086865

PATIENT
  Age: 68 Year
  Sex: Female
  Weight: 64 kg

DRUGS (14)
  1. PACLITAXEL [Suspect]
     Active Substance: PACLITAXEL
     Indication: HER2 positive breast cancer
     Dosage: 80 MG/M2 WEEKLY
     Route: 042
     Dates: start: 20170908, end: 20171229
  2. EXEMESTANE [Suspect]
     Active Substance: EXEMESTANE
     Indication: HER2 positive breast cancer
     Dosage: 25 MG, DAILY
     Route: 048
     Dates: start: 20181228
  3. PERTUZUMAB [Suspect]
     Active Substance: PERTUZUMAB
     Indication: HER2 positive breast cancer
     Dosage: 840 MG, EVERY 3 WEEKS (MOST RECENT DOSE PRIOR TO THE EVENT: 29SEP2017)
     Route: 042
     Dates: start: 20170908, end: 20170929
  4. TRASTUZUMAB [Suspect]
     Active Substance: TRASTUZUMAB
     Indication: HER2 positive breast cancer
     Dosage: 8 MG/M2,EVERY 3 WEEKS;(MOST RECENT DOSE PRIOR TO THE EVENT: 29SEP2017)
     Route: 042
     Dates: start: 20170908, end: 20170929
  5. LEVOFLOXACIN [Concomitant]
     Active Substance: LEVOFLOXACIN
     Indication: Nail infection
     Dosage: UNK
     Route: 065
     Dates: start: 20180105, end: 20180105
  6. RANITIDINE [Concomitant]
     Active Substance: RANITIDINE
     Dosage: UNK
     Dates: start: 20160219, end: 20171229
  7. CHLORPHENIRAMINE MALEATE [Concomitant]
     Active Substance: CHLORPHENIRAMINE MALEATE
     Dosage: UNK
     Dates: start: 20160219, end: 20171229
  8. DEXAMETHASONE [Concomitant]
     Active Substance: DEXAMETHASONE
     Dosage: UNK
     Dates: start: 20160219
  9. PREGABALIN [Concomitant]
     Active Substance: PREGABALIN
     Indication: Pain in jaw
     Dosage: UNK
     Dates: start: 20180824
  10. CANDESARTAN CILEXETIL [Concomitant]
     Active Substance: CANDESARTAN CILEXETIL
     Indication: Ejection fraction decreased
     Dosage: UNK
     Dates: start: 20180528
  11. ONDANSETRON [Concomitant]
     Active Substance: ONDANSETRON
     Dosage: 8 MG
     Route: 042
     Dates: start: 20180914
  12. ESOMEPRAZOLE [Concomitant]
     Active Substance: ESOMEPRAZOLE
     Dosage: 40 MG, EVERY OTHER DAY
     Dates: start: 20200417
  13. PANTOPRAZOLE SODIUM [Concomitant]
     Active Substance: PANTOPRAZOLE SODIUM
     Dosage: 20 MG, EVERY OTHER DAY
     Route: 048
     Dates: start: 20200306, end: 20200416
  14. RAMIPRIL [Concomitant]
     Active Substance: RAMIPRIL
     Dosage: 2.5 MG, 2X/DAY
     Route: 048
     Dates: start: 20180426, end: 20180527

REACTIONS (12)
  - Diverticulitis [Recovered/Resolved]
  - Thrombosis [Recovered/Resolved]
  - Nausea [Recovered/Resolved]
  - Glossitis [Recovered/Resolved]
  - Diarrhoea [Recovered/Resolved]
  - Asthenia [Recovered/Resolved]
  - Oedema peripheral [Not Recovered/Not Resolved]
  - Nail infection [Recovered/Resolved]
  - Anaemia [Recovered/Resolved]
  - Microangiopathy [Not Recovered/Not Resolved]
  - Gastrooesophageal reflux disease [Recovered/Resolved]
  - Diarrhoea [Recovered/Resolved]

NARRATIVE: CASE EVENT DATE: 20171111
